FAERS Safety Report 14779690 (Version 1)
Quarter: 2018Q2

REPORT INFORMATION
  Report Type: Report from Study
  Country: IE (occurrence: IE)
  Receive Date: 20180419
  Receipt Date: 20180419
  Transmission Date: 20180711
  Serious: Yes (Other)
  Sender: FDA-Public Use
  Company Number: PHHY2017IE194374

PATIENT
  Age: 57 Year
  Sex: Male

DRUGS (1)
  1. VOTRIENT [Suspect]
     Active Substance: PAZOPANIB HYDROCHLORIDE
     Indication: RENAL CELL CARCINOMA
     Dosage: 800 MG, UNK
     Route: 048

REACTIONS (7)
  - Musculoskeletal pain [Recovered/Resolved]
  - Noninfective gingivitis [Recovered/Resolved]
  - Osteonecrosis of jaw [Recovered/Resolved]
  - Blood pressure increased [Recovered/Resolved]
  - Gingival pain [Recovered/Resolved]
  - Myalgia [Recovering/Resolving]
  - Hypertension [Not Recovered/Not Resolved]

NARRATIVE: CASE EVENT DATE: 20170623
